FAERS Safety Report 4333685-9 (Version None)
Quarter: 2004Q2

REPORT INFORMATION
  Report Type: 
  Country: None (occurrence: None)
  Receive Date: 20040402
  Receipt Date: 20040323
  Transmission Date: 20050107
  Serious: Yes (Death, Other)
  Sender: FDA-Public Use
  Company Number: USA-2003-0005857

PATIENT
  Age: 34 Year
  Sex: Female
  Weight: 65.8 kg

DRUGS (9)
  1. OXYCONTIN [Suspect]
     Dosage: 480 MG, Q12H, ORAL
     Route: 048
  2. TEMAZEPAM [Suspect]
  3. ETHANOL [Suspect]
  4. ACETAMINOPHEN [Suspect]
  5. NAPROXEN [Suspect]
  6. TRAZODONE HCL [Concomitant]
  7. PROCHLORPERAZINE [Concomitant]
  8. LEVAQUIN [Concomitant]
  9. CLONAZEPAM [Concomitant]

REACTIONS (20)
  - ACCIDENTAL OVERDOSE [None]
  - GASTROINTESTINAL INJURY [None]
  - HEPATIC TRAUMA [None]
  - LABORATORY TEST ABNORMAL [None]
  - MUSCLE INJURY [None]
  - PLEURAL DISORDER [None]
  - POISONING [None]
  - POLYSUBSTANCE ABUSE [None]
  - POLYTRAUMATISM [None]
  - RENAL INJURY [None]
  - RIB FRACTURE [None]
  - ROAD TRAFFIC ACCIDENT [None]
  - SKULL FRACTURE [None]
  - SOMNOLENCE [None]
  - SPINAL FRACTURE [None]
  - SPLENIC INJURY [None]
  - STERNAL FRACTURE [None]
  - SUICIDE ATTEMPT [None]
  - TRAUMATIC BRAIN INJURY [None]
  - VENTRICLE RUPTURE [None]
